FAERS Safety Report 8123778-2 (Version None)
Quarter: 2012Q1

REPORT INFORMATION
  Report Type: 
  Country: None (occurrence: None)
  Receive Date: 20120208
  Receipt Date: 20120130
  Transmission Date: 20120608
  Serious: Yes (Other)
  Sender: FDA-Public Use
  Company Number: JP-ASTRAZENECA-2012SE07279

PATIENT
  Age: 71 Year
  Sex: Male

DRUGS (2)
  1. ROPIVACAINE HYDROCHLORIDE [Suspect]
     Route: 065
     Dates: start: 20100601, end: 20100601
  2. DIPRIVAN [Suspect]
     Route: 042
     Dates: start: 20100601, end: 20100601

REACTIONS (1)
  - ANAPHYLACTIC SHOCK [None]
